FAERS Safety Report 22261603 (Version 4)
Quarter: 2023Q2

REPORT INFORMATION
  Report Type: Spontaneous
  Country: CN (occurrence: CN)
  Receive Date: 20230427
  Receipt Date: 20230516
  Transmission Date: 20230721
  Serious: Yes (Death, Life-Threatening)
  Sender: FDA-Public Use
  Company Number: CN-BIOGEN-2023BI01201303

PATIENT
  Age: 23 Year
  Sex: Female
  Weight: 25 kg

DRUGS (8)
  1. SPINRAZA [Suspect]
     Active Substance: NUSINERSEN
     Indication: Spinal muscular atrophy
     Dosage: INITIAL DOSE
     Route: 050
     Dates: start: 20220213
  2. SPINRAZA [Suspect]
     Active Substance: NUSINERSEN
     Dosage: 2ND DOSE
     Route: 050
     Dates: start: 20220227
  3. SPINRAZA [Suspect]
     Active Substance: NUSINERSEN
     Dosage: 3RD DOSE
     Route: 050
     Dates: start: 20220313
  4. SPINRAZA [Suspect]
     Active Substance: NUSINERSEN
     Dosage: 4TH DOSE
     Route: 050
     Dates: start: 20220417
  5. SPINRAZA [Suspect]
     Active Substance: NUSINERSEN
     Dosage: 5TH DOSE
     Route: 050
     Dates: start: 20220817
  6. SPINRAZA [Suspect]
     Active Substance: NUSINERSEN
     Dosage: 6TH DOSE
     Route: 050
     Dates: start: 20221217
  7. SPINRAZA [Suspect]
     Active Substance: NUSINERSEN
     Dosage: 7TH DOSE
     Route: 050
     Dates: start: 20230420
  8. CEFTRIAXONE [Concomitant]
     Active Substance: CEFTRIAXONE
     Indication: Anti-infective therapy
     Route: 050
     Dates: start: 20230421

REACTIONS (3)
  - Cardio-respiratory arrest [Fatal]
  - Poor quality sleep [Unknown]
  - Fatigue [Unknown]

NARRATIVE: CASE EVENT DATE: 20230401
